FAERS Safety Report 15034208 (Version 1)
Quarter: 2018Q2

REPORT INFORMATION
  Report Type: Report from Study
  Country: US (occurrence: US)
  Receive Date: 20180620
  Receipt Date: 20180620
  Transmission Date: 20180711
  Serious: Yes (Other)
  Sender: FDA-Public Use
  Company Number: US-TEVA-2018-US-864531

PATIENT
  Age: 51 Year
  Sex: Female
  Weight: 52.6 kg

DRUGS (8)
  1. PREDNISONE. [Suspect]
     Active Substance: PREDNISONE
     Indication: IMMUNOSUPPRESSANT DRUG THERAPY
     Dosage: 30MG PER DAY
     Route: 048
  2. MYCOPHENOLATE MOFETIL. [Concomitant]
     Active Substance: MYCOPHENOLATE MOFETIL
     Indication: IMMUNOSUPPRESSANT DRUG THERAPY
     Dosage: 1G PER DAY
  3. PREDNISONE. [Suspect]
     Active Substance: PREDNISONE
     Indication: IMMUNOSUPPRESSANT DRUG THERAPY
     Dosage: TAPERED BY 2.5MG DECREASE IN DAILY DOSE EVERY WEEK UNTIL 5MG PER DAY
     Route: 048
  4. CALCIUM CITRATE-VITAMIN D3 [Concomitant]
     Route: 065
  5. TACROLIMUS. [Suspect]
     Active Substance: TACROLIMUS
     Indication: IMMUNOSUPPRESSANT DRUG THERAPY
     Dosage: 16MG PER DAY
     Route: 065
  6. TACROLIMUS. [Suspect]
     Active Substance: TACROLIMUS
     Indication: IMMUNOSUPPRESSANT DRUG THERAPY
     Dosage: 6MG PER DAY
     Route: 065
  7. ESTROGEN-MEDROXYPROGESTERONE ACETATE [Concomitant]
     Indication: HORMONE REPLACEMENT THERAPY
     Route: 065
  8. MAGNESIUM GLUCONATE [Concomitant]
     Active Substance: MAGNESIUM GLUCONATE
     Route: 065

REACTIONS (5)
  - Bone density decreased [Unknown]
  - Bone loss [Unknown]
  - Resorption bone increased [Unknown]
  - Osteopenia [Unknown]
  - Osteoporosis [Unknown]
